FAERS Safety Report 5105834-6 (Version None)
Quarter: 2006Q3

REPORT INFORMATION
  Report Type: 
  Country: None (occurrence: None)
  Receive Date: 20060915
  Receipt Date: 20060706
  Transmission Date: 20061208
  Serious: Yes (Other)
  Sender: FDA-Public Use
  Company Number: US-GLAXOSMITHKLINE-A0611694A

PATIENT
  Age: 38 Year
  Sex: Female

DRUGS (4)
  1. LAMICTAL [Suspect]
     Indication: BIPOLAR DISORDER
     Dosage: 200MG PER DAY
     Route: 048
  2. LORAZEPAM [Concomitant]
  3. DEXEDRINE [Concomitant]
  4. CELEXA [Concomitant]

REACTIONS (4)
  - NORMAL DELIVERY [None]
  - POLYHYDRAMNIOS [None]
  - PREGNANCY [None]
  - UMBILICAL CORD ABNORMALITY [None]
